FAERS Safety Report 16074550 (Version 1)
Quarter: 2019Q1

REPORT INFORMATION
  Report Type: Report from Study
  Country: US (occurrence: US)
  Receive Date: 20190314
  Receipt Date: 20190314
  Transmission Date: 20190418
  Serious: No
  Sender: FDA-Public Use
  Company Number: PHEH2019US010475

PATIENT
  Sex: Female

DRUGS (1)
  1. ENTRESTO [Suspect]
     Active Substance: SACUBITRIL\VALSARTAN
     Indication: PRODUCT USED FOR UNKNOWN INDICATION
     Route: 048

REACTIONS (8)
  - Fluid retention [Unknown]
  - Drug ineffective [Unknown]
  - Arthritis [Unknown]
  - Musculoskeletal pain [Unknown]
  - Eating disorder [Unknown]
  - Amnesia [Unknown]
  - Concomitant disease aggravated [Unknown]
  - Nasopharyngitis [Unknown]
